FAERS Safety Report 13633321 (Version 2)
Quarter: 2017Q2

REPORT INFORMATION
  Report Type: Spontaneous
  Country: GR (occurrence: CY)
  Receive Date: 20170609
  Receipt Date: 20170609
  Transmission Date: 20170830
  Serious: Yes (Hospitalization)
  Sender: FDA-Public Use
  Company Number: GR-CIPLA LTD.-2017GR09915

PATIENT

DRUGS (13)
  1. HALOPERIDOL. [Suspect]
     Active Substance: HALOPERIDOL
     Dosage: 60 MG/DAY
     Route: 065
  2. ARIPIPRAZOLE. [Suspect]
     Active Substance: ARIPIPRAZOLE
     Dosage: 80 MG/DAY, FOR 2 MONTHS
     Route: 065
  3. FLUVOXAMINE [Suspect]
     Active Substance: FLUVOXAMINE
     Dosage: 100 MG/DAY, FOR 2 MONTHS
     Route: 065
  4. VIPERIDEN [Suspect]
     Active Substance: UNSPECIFIED INGREDIENT
     Dosage: 4 MG/DAY
     Route: 065
  5. CLONAZEPAM. [Suspect]
     Active Substance: CLONAZEPAM
     Dosage: 2 MG/DAY
     Route: 065
  6. CLONAZEPAM. [Suspect]
     Active Substance: CLONAZEPAM
     Dosage: 2 MG/DAY
     Route: 065
  7. OLANZAPINE. [Suspect]
     Active Substance: OLANZAPINE
     Dosage: 50 MG/DAY
     Route: 065
  8. VIPERIDEN [Suspect]
     Active Substance: UNSPECIFIED INGREDIENT
     Dosage: 6 MG/DAY
     Route: 065
  9. VIPERIDEN [Suspect]
     Active Substance: UNSPECIFIED INGREDIENT
     Dosage: 6 MG/DAY
     Route: 065
  10. CLONAZEPAM. [Suspect]
     Active Substance: CLONAZEPAM
     Dosage: 1 MG/DAY
     Route: 065
  11. RISPERIDONE. [Suspect]
     Active Substance: RISPERIDONE
     Dosage: 20 MG/DAY
     Route: 065
  12. TOPIRAMATE. [Suspect]
     Active Substance: TOPIRAMATE
     Dosage: 100 MG/DAY
     Route: 065
  13. OLANZAPINE. [Suspect]
     Active Substance: OLANZAPINE
     Dosage: 20 MG/DAY
     Route: 065

REACTIONS (4)
  - Dizziness [Unknown]
  - Impaired quality of life [Unknown]
  - Intellectual disability [Unknown]
  - Schizophrenia [Recovering/Resolving]
